FAERS Safety Report 9526745 (Version 1)
Quarter: 2013Q3

REPORT INFORMATION
  Report Type: Spontaneous
  Country: GB (occurrence: GB)
  Receive Date: 20130916
  Receipt Date: 20130916
  Transmission Date: 20140515
  Serious: Yes (Disabling)
  Sender: FDA-Public Use
  Company Number: GB-TAKEDA-2013TJP000770

PATIENT
  Sex: 0

DRUGS (6)
  1. LANSOPRAZOLE [Suspect]
     Dosage: UNK
     Route: 002
     Dates: start: 20130521, end: 20130808
  2. FEXOFENADINE [Concomitant]
     Dosage: UNK
     Dates: start: 20130502, end: 20130601
  3. OMEPRAZOLE [Concomitant]
     Dosage: UNK
     Dates: start: 20130502, end: 20130530
  4. DOMPERIDONE [Concomitant]
     Dosage: UNK
     Dates: start: 20130521, end: 20130620
  5. FUCIBET [Concomitant]
     Dosage: UNK
     Dates: start: 20130521, end: 20130618
  6. LORATADINE [Concomitant]
     Dosage: UNK
     Dates: start: 20130521, end: 20130528

REACTIONS (2)
  - Essential tremor [Recovered/Resolved]
  - Restlessness [Unknown]
